FAERS Safety Report 8424460 (Version 2)
Quarter: 2013Q1

REPORT INFORMATION
  Report Type: Spontaneous
  Country: US (occurrence: US)
  Receive Date: 20120224
  Receipt Date: 20130211
  Transmission Date: 20140127
  Serious: No
  Sender: FDA-Public Use
  Company Number: US-BRISTOL-MYERS SQUIBB COMPANY-16284465

PATIENT
  Age: 56 Year
  Sex: Male
  Weight: 79.36 kg

DRUGS (5)
  1. GLUCOPHAGE [Suspect]
     Dosage: FOR 2-3 YEARS
  2. PLAVIX [Suspect]
     Dosage: 2 TO 3 YEARS AGO?FILM COATED TABS
     Route: 048
  3. GLIPIZIDE [Concomitant]
  4. METOPROLOL [Concomitant]
  5. LIPITOR [Concomitant]

REACTIONS (2)
  - Musculoskeletal pain [Unknown]
  - Joint crepitation [Unknown]
